FAERS Safety Report 7433498-5 (Version None)
Quarter: 2011Q2

REPORT INFORMATION
  Report Type: 
  Country: None (occurrence: None)
  Receive Date: 20110422
  Receipt Date: 20110311
  Transmission Date: 20111010
  Serious: No
  Sender: FDA-Public Use
  Company Number: US-MUTUAL PHARMACEUTICAL COMPANY, INC.-CLCY20110026

PATIENT
  Sex: Male
  Weight: 104.42 kg

DRUGS (4)
  1. GLUCOPHAGE [Concomitant]
     Indication: DIABETES MELLITUS
     Route: 048
  2. TRAMADOL HCL [Concomitant]
     Indication: PAIN
     Route: 048
     Dates: start: 20110223
  3. COLCRYS [Suspect]
     Indication: GOUT
     Route: 048
     Dates: start: 20110223
  4. LOTREL [Concomitant]
     Indication: HYPERTENSION
     Route: 065

REACTIONS (1)
  - DRUG INEFFECTIVE [None]
